FAERS Safety Report 6297480-6 (Version None)
Quarter: 2009Q3

REPORT INFORMATION
  Report Type: 
  Country: None (occurrence: None)
  Receive Date: 20090805
  Receipt Date: 20090728
  Transmission Date: 20100115
  Serious: Yes (Other)
  Sender: FDA-Public Use
  Company Number: US-AMGEN-QUU356403

PATIENT
  Sex: Female

DRUGS (10)
  1. ENBREL [Suspect]
     Indication: PSORIASIS
     Route: 058
     Dates: start: 20090617, end: 20090625
  2. ENBREL [Suspect]
     Indication: PSORIATIC ARTHROPATHY
  3. UNSPECIFIED STEROIDS [Concomitant]
  4. CLOBETASOL PROPIONATE [Concomitant]
     Dates: start: 20090112
  5. CALCITRIOL [Concomitant]
     Dates: start: 20090716
  6. FLUOCINONIDE [Concomitant]
     Dates: start: 20090630
  7. DYAZIDE [Concomitant]
  8. FEXOFENADINE [Concomitant]
  9. FLONASE [Concomitant]
  10. HYDROXYZINE [Concomitant]
     Dates: start: 20090716

REACTIONS (3)
  - CELLULITIS [None]
  - DRUG ERUPTION [None]
  - OEDEMA PERIPHERAL [None]
